FAERS Safety Report 8523029-0 (Version None)
Quarter: 2012Q3

REPORT INFORMATION
  Report Type: 
  Country: None (occurrence: None)
  Receive Date: 20120720
  Receipt Date: 20120717
  Transmission Date: 20120928
  Serious: Yes (Death, Life-Threatening, Hospitalization, Disabling)
  Sender: FDA-Public Use
  Company Number: CA-ROCHE-1089589

PATIENT
  Age: 83 Year
  Sex: Female
  Weight: 49.94 kg

DRUGS (4)
  1. LOVENOX [Concomitant]
     Route: 058
  2. TNKASE [Suspect]
     Indication: PRODUCT USED FOR UNKNOWN INDICATION
     Route: 042
  3. PLAVIX [Concomitant]
     Route: 048
  4. ASPIRIN [Concomitant]
     Route: 048

REACTIONS (3)
  - THROMBOLYSIS [None]
  - ACUTE MYOCARDIAL INFARCTION [None]
  - CEREBRAL HAEMATOMA [None]
